FAERS Safety Report 20574707 (Version 1)
Quarter: 2022Q1

REPORT INFORMATION
  Report Type: Spontaneous
  Country: US (occurrence: US)
  Receive Date: 20220309
  Receipt Date: 20220309
  Transmission Date: 20220423
  Serious: No
  Sender: FDA-Public Use
  Company Number: US-BIOVITRUM-2022US03079

PATIENT
  Sex: Female

DRUGS (2)
  1. SYNAGIS [Suspect]
     Active Substance: PALIVIZUMAB
     Indication: Premature baby
     Route: 030
     Dates: start: 20211020
  2. SYNAGIS [Suspect]
     Active Substance: PALIVIZUMAB
     Indication: Laryngeal stenosis

REACTIONS (2)
  - Malaise [Unknown]
  - Product dose omission issue [Unknown]
